FAERS Safety Report 21151592 (Version 4)
Quarter: 2022Q4

REPORT INFORMATION
  Report Type: Spontaneous
  Country: US (occurrence: US)
  Receive Date: 20220730
  Receipt Date: 20221207
  Transmission Date: 20230112
  Serious: Yes (Hospitalization, Other)
  Sender: FDA-Public Use
  Company Number: US-UNITED THERAPEUTICS-UNT-2021-026650

PATIENT
  Age: 14 Year
  Sex: Female
  Weight: 49.887 kg

DRUGS (29)
  1. REMODULIN [Suspect]
     Active Substance: TREPROSTINIL
     Indication: Pulmonary arterial hypertension
     Dosage: UNK, CONTINUING
     Route: 058
     Dates: start: 20180817
  2. REMODULIN [Suspect]
     Active Substance: TREPROSTINIL
     Dosage: 0.139 ?G/KG, CONTINUING (AT A RATE OF 0.046 ML/HOUR)
     Route: 058
  3. REMODULIN [Suspect]
     Active Substance: TREPROSTINIL
     Dosage: 0.116 ?G/KG, CONTINUING
     Route: 058
  4. REMODULIN [Suspect]
     Active Substance: TREPROSTINIL
     Dosage: 0.114 ?G/KG, CONTINUING (AT A PUMP RATE OF 0.040ML/HR)
     Route: 058
     Dates: start: 20220322
  5. XARELTO [Suspect]
     Active Substance: RIVAROXABAN
     Indication: Product used for unknown indication
     Dosage: UNK
     Route: 065
  6. APIXABAN [Suspect]
     Active Substance: APIXABAN
     Indication: Pulmonary thrombosis
     Dosage: UNK, Q12H (1 TABLET BY MOUTH EVERY 12 HOURS)
     Route: 048
     Dates: start: 20220323, end: 20220926
  7. OPSUMIT [Concomitant]
     Active Substance: MACITENTAN
     Indication: Product used for unknown indication
     Dosage: 10 MG, QD
     Route: 048
     Dates: start: 20210930, end: 20220831
  8. TADALAFIL [Concomitant]
     Active Substance: TADALAFIL
     Indication: Product used for unknown indication
     Dosage: UNK, QD (2 TABLETS BY MOUTH ONE TIME EACH DAY)
     Route: 048
     Dates: start: 20220413
  9. ADCIRCA [Concomitant]
     Active Substance: TADALAFIL
     Indication: Pulmonary arterial hypertension
     Dosage: UNK
     Route: 065
  10. MILRINONE [Concomitant]
     Active Substance: MILRINONE
     Indication: Product used for unknown indication
     Dosage: 0.25 MCG/KG/MIN, CONTINUING
     Route: 041
     Dates: start: 20220705
  11. MILRINONE [Concomitant]
     Active Substance: MILRINONE
     Dosage: 0.50 MCG/KG/MIN, CONTINUING (DOSING WEIGHT OF 58 KG)
     Route: 041
     Dates: start: 20220706, end: 20220803
  12. ADVAIR HFA [Concomitant]
     Active Substance: FLUTICASONE PROPIONATE\SALMETEROL XINAFOATE
     Indication: Product used for unknown indication
     Dosage: UNK, BID (INHALE 2 PUFFS TWO TIMES A DAY)
     Dates: start: 20220416
  13. PREDNISONE [Concomitant]
     Active Substance: PREDNISONE
     Indication: Product used for unknown indication
     Dosage: UNK, QD (3 TABLETS BY MOUTH ONE TIME EACH DAY)
     Route: 048
     Dates: start: 20220519, end: 2022
  14. PREDNISONE [Concomitant]
     Active Substance: PREDNISONE
     Indication: Product used for unknown indication
     Dosage: UNK, QD (0.5 TABLET BY MOUTH ONE TIME EACH DAY)
     Route: 048
     Dates: start: 20220701, end: 20220803
  15. XOLAIR [Concomitant]
     Active Substance: OMALIZUMAB
     Indication: Product used for unknown indication
     Dosage: 300 MG, Q2WK
     Route: 058
     Dates: start: 20220415
  16. FAMOTIDINE [Concomitant]
     Active Substance: FAMOTIDINE
     Indication: Product used for unknown indication
     Dosage: UNK, QD (1 TABLET BY MOUTH 1 TIME EACH DAY)
     Route: 048
     Dates: start: 20220413, end: 20220818
  17. FERRIC POLYSACCHARIDE COMPLEX [Concomitant]
     Active Substance: FERRIC POLYSACCHARIDE COMPLEX
     Indication: Product used for unknown indication
     Dosage: UNK, QD (3 CAPSULES BY MOUTH ONE TIME EACH DAY)
     Route: 048
     Dates: start: 20220607, end: 20220803
  18. LACTOBACILLUS ACIDOPHILUS [Concomitant]
     Active Substance: LACTOBACILLUS ACIDOPHILUS
     Indication: Product used for unknown indication
     Dosage: UNK, QD (1 CAPSULE BY MOUTH EVERY 24 HOURS)
     Route: 048
     Dates: start: 20210818
  19. GABAPENTIN [Concomitant]
     Active Substance: GABAPENTIN
     Indication: Product used for unknown indication
     Dosage: 100 MG, QHS
     Route: 048
     Dates: start: 20220106, end: 20220803
  20. BUPROPION [Concomitant]
     Active Substance: BUPROPION
     Indication: Product used for unknown indication
     Dosage: UNK, QD
     Route: 065
  21. ALBUTEROL SULFATE [Concomitant]
     Active Substance: ALBUTEROL SULFATE
     Indication: Wheezing
     Dosage: 4 PUFF BY MOUTH, Q4H IF NEEDED
     Route: 048
     Dates: start: 20220106
  22. AMOXICILLIN [Concomitant]
     Active Substance: AMOXICILLIN
     Indication: Product used for unknown indication
     Dosage: UNK, QD (TAKE 4 CAPSULES BY MOUTH ONE TIME)
     Route: 048
     Dates: start: 20200929
  23. BIOTIN [Concomitant]
     Active Substance: BIOTIN
     Indication: Product used for unknown indication
     Dosage: 5000 MCG, QD
     Route: 048
  24. BUPROPION HYDROCHLORIDE XL [Concomitant]
     Active Substance: BUPROPION HYDROCHLORIDE
     Indication: Mixed anxiety and depressive disorder
     Dosage: 300 MG, QD (DO NOT CRUSH, CHEW OR SPLIT)
     Route: 048
  25. CAFFEINE [Concomitant]
     Active Substance: CAFFEINE
     Indication: Migraine
     Dosage: UNK, PRN (1 TABLET BY MOUTH 1 TIME AS NEEDED FOR UP TO 20 DOSES. DO NOT TAKE MORE THAN 2X IN 24 HRS)
     Route: 048
     Dates: start: 20210413
  26. VITAMIN D3 [Concomitant]
     Active Substance: CHOLECALCIFEROL
     Indication: Product used for unknown indication
     Dosage: 1000 UNITS, QD
     Route: 048
     Dates: start: 20220613
  27. EPINEPHRINE [Concomitant]
     Active Substance: EPINEPHRINE
     Indication: Anaphylactic reaction
     Dosage: 0.3 ML, PRN
     Route: 030
     Dates: start: 20220421
  28. NORETHINDRONE [Concomitant]
     Active Substance: NORETHINDRONE
     Indication: Product used for unknown indication
     Dosage: UNK, QD (1 TABLET BY MOUTH 1 TIME EACH DAY)
     Route: 048
     Dates: start: 20210806, end: 20220803
  29. METHIMAZOLE [Concomitant]
     Active Substance: METHIMAZOLE
     Indication: Product used for unknown indication
     Dosage: UNK
     Route: 065

REACTIONS (15)
  - Hypoxia [Not Recovered/Not Resolved]
  - Uterine haemorrhage [Not Recovered/Not Resolved]
  - Dyspnoea [Not Recovered/Not Resolved]
  - Oxygen saturation decreased [Recovered/Resolved]
  - General physical health deterioration [Not Recovered/Not Resolved]
  - COVID-19 [Not Recovered/Not Resolved]
  - Rhinovirus infection [Recovered/Resolved]
  - Post-acute COVID-19 syndrome [Not Recovered/Not Resolved]
  - Headache [Not Recovered/Not Resolved]
  - Nausea [Recovered/Resolved]
  - Vomiting [Recovered/Resolved]
  - Disease progression [Not Recovered/Not Resolved]
  - Migraine [Unknown]
  - Dysmenorrhoea [Unknown]
  - Lung disorder [Unknown]

NARRATIVE: CASE EVENT DATE: 20210104
